FAERS Safety Report 9363440 (Version 8)
Quarter: 2014Q1

REPORT INFORMATION
  Report Type: Report from Study
  Country: FR (occurrence: FR)
  Receive Date: 20130624
  Receipt Date: 20140307
  Transmission Date: 20141002
  Serious: Yes (Hospitalization)
  Sender: FDA-Public Use
  Company Number: FR-ROCHE-1236582

PATIENT
  Age: 47 Year
  Sex: Female
  Weight: 51.8 kg

DRUGS (13)
  1. RITUXIMAB [Suspect]
     Indication: DIFFUSE LARGE B-CELL LYMPHOMA
     Dosage: LAST DOSE PRIOR TO SAE ON 23/MAY/2013
     Route: 065
     Dates: start: 20130514, end: 20130611
  2. RITUXIMAB [Suspect]
     Route: 065
     Dates: start: 20130626
  3. RITUXIMAB [Suspect]
     Route: 065
     Dates: start: 20130430
  4. DOXORUBICIN HCL [Suspect]
     Indication: LYMPHOMA
     Route: 065
     Dates: start: 20130514
  5. DOXORUBICIN HCL [Suspect]
     Route: 065
     Dates: start: 20130430, end: 20130630
  6. CYCLOPHOSPHAMIDE [Suspect]
     Indication: LYMPHOMA
     Route: 065
     Dates: start: 20130514
  7. CYCLOPHOSPHAMIDE [Suspect]
     Route: 065
     Dates: start: 20130430, end: 20130630
  8. PREDNISONE [Suspect]
     Indication: LYMPHOMA
     Route: 065
     Dates: start: 20130514
  9. PREDNISONE [Suspect]
     Route: 065
     Dates: start: 20130430, end: 20130630
  10. VINDESINE [Suspect]
     Indication: LYMPHOMA
     Route: 065
     Dates: start: 20130514
  11. VINDESINE [Suspect]
     Route: 065
     Dates: start: 20130430, end: 20130630
  12. BLEOMYCIN [Suspect]
     Indication: LYMPHOMA
     Route: 065
     Dates: start: 20130514
  13. BLEOMYCIN [Suspect]
     Route: 065
     Dates: start: 20130430, end: 20130630

REACTIONS (4)
  - Febrile bone marrow aplasia [Recovered/Resolved]
  - Lung disorder [Recovered/Resolved]
  - Chest pain [Recovered/Resolved]
  - Pelvic venous thrombosis [Recovered/Resolved]
